FAERS Safety Report 6482360-3 (Version None)
Quarter: 2009Q4

REPORT INFORMATION
  Report Type: 
  Country: None (occurrence: None)
  Receive Date: 20091208
  Receipt Date: 20091202
  Transmission Date: 20100525
  Serious: Yes (Hospitalization, Other)
  Sender: FDA-Public Use
  Company Number: IN-SANOFI-AVENTIS-2009SA006191

PATIENT
  Age: 56 Year
  Sex: Male
  Weight: 57 kg

DRUGS (13)
  1. BLINDED THERAPY [Suspect]
     Indication: NON-SMALL CELL LUNG CANCER METASTATIC
     Route: 042
     Dates: start: 20091118, end: 20091118
  2. BLINDED THERAPY [Suspect]
     Dates: start: 20081203, end: 20081203
  3. DOCETAXEL [Suspect]
     Indication: NON-SMALL CELL LUNG CANCER METASTATIC
     Route: 042
     Dates: start: 20091118, end: 20091118
  4. DOCETAXEL [Suspect]
     Dates: start: 20081203, end: 20081203
  5. COLGEN [Concomitant]
  6. ALL OTHER THERAPEUTIC PRODUCTS [Concomitant]
  7. DUPHALAC /NET/ [Concomitant]
  8. ALL OTHER THERAPEUTIC PRODUCTS [Concomitant]
  9. BUDESONIDE [Concomitant]
  10. IPRATROPIUM/SALBUTAMOL [Concomitant]
  11. ALL OTHER THERAPEUTIC PRODUCTS [Concomitant]
  12. OMEPRAZOLE [Concomitant]
  13. DOMSTAL [Concomitant]

REACTIONS (3)
  - DYSPHAGIA [None]
  - HEMIPARESIS [None]
  - RESPIRATORY DISTRESS [None]
